FAERS Safety Report 24528121 (Version 1)
Quarter: 2024Q4

REPORT INFORMATION
  Report Type: Spontaneous
  Country: US (occurrence: None)
  Receive Date: 20241018
  Receipt Date: 20241018
  Transmission Date: 20250114
  Serious: Yes (Hospitalization)
  Sender: Public
  Company Number: None

PATIENT
  Age: 70 Year
  Sex: Male
  Weight: 83 kg

DRUGS (1)
  1. AZITHROMYCIN [Suspect]
     Active Substance: AZITHROMYCIN
     Indication: Pulmonary congestion
     Route: 048

REACTIONS (6)
  - Hypotension [None]
  - Dehydration [None]
  - Acute kidney injury [None]
  - Diarrhoea [None]
  - Hypophagia [None]
  - Abdominal pain [None]

NARRATIVE: CASE EVENT DATE: 20240329
